FAERS Safety Report 6176952-9 (Version None)
Quarter: 2009Q2

REPORT INFORMATION
  Report Type: 
  Country: None (occurrence: None)
  Receive Date: 20090501
  Receipt Date: 20071017
  Transmission Date: 20091009
  Serious: Yes (Hospitalization)
  Sender: FDA-Public Use
  Company Number: US-ALEXION-A200700077

PATIENT

DRUGS (13)
  1. ECULIZUMAB [Suspect]
     Indication: PAROXYSMAL NOCTURNAL HAEMOGLOBINURIA
     Dosage: 600 MG, SINGLE
     Route: 042
     Dates: start: 20070425, end: 20070425
  2. ECULIZUMAB [Suspect]
     Dosage: 600 MG, SINGLE
     Route: 042
     Dates: start: 20070502, end: 20070502
  3. ECULIZUMAB [Suspect]
     Dosage: 600 MG, SINGLE
     Route: 042
     Dates: start: 20070509, end: 20070509
  4. ECULIZUMAB [Suspect]
     Dosage: 600 MG, SINGLE
     Route: 042
     Dates: start: 20070516, end: 20070516
  5. ECULIZUMAB [Suspect]
     Dosage: 900 MG, SINGLE
     Route: 042
     Dates: start: 20070523, end: 20070523
  6. ECULIZUMAB [Suspect]
     Dosage: 900 MG, SINGLE
     Route: 042
     Dates: start: 20070613, end: 20070613
  7. ECULIZUMAB [Suspect]
     Dosage: 900 MG, SINGLE
     Route: 042
     Dates: start: 20070627, end: 20070627
  8. ECULIZUMAB [Suspect]
     Dosage: 900 MG, SINGLE
     Route: 042
     Dates: start: 20070711, end: 20070711
  9. ECULIZUMAB [Suspect]
     Dosage: 900 MG, SINGLE
     Route: 042
     Dates: start: 20070725, end: 20070725
  10. ECULIZUMAB [Suspect]
     Dosage: 900 MG, SINGLE
     Route: 042
     Dates: start: 20070808, end: 20070808
  11. ECULIZUMAB [Suspect]
     Dosage: 900 MG, SINGLE
     Route: 042
     Dates: start: 20070822, end: 20070822
  12. ECULIZUMAB [Suspect]
     Dosage: 900 MG, SINGLE
     Route: 042
     Dates: start: 20070905, end: 20070905
  13. ECULIZUMAB [Suspect]
     Dosage: 900 MG, SINGLE
     Route: 042
     Dates: start: 20070919, end: 20070919

REACTIONS (2)
  - ANAEMIA [None]
  - PYELONEPHRITIS [None]
